FAERS Safety Report 21271311 (Version 2)
Quarter: 2022Q3

REPORT INFORMATION
  Report Type: Spontaneous
  Country: US (occurrence: US)
  Receive Date: 20220830
  Receipt Date: 20220831
  Transmission Date: 20221026
  Serious: Yes (Life-Threatening, Other)
  Sender: FDA-Public Use
  Company Number: US-AMERICAN REGENT INC-2022002099

PATIENT
  Age: 25 Year
  Weight: 45.351 kg

DRUGS (17)
  1. INJECTAFER [Suspect]
     Active Substance: FERRIC CARBOXYMALTOSE
     Indication: Iron deficiency anaemia
     Dosage: 15 MG/KG, 680 MG (263.6 ML IN 250 ML OF NORMAL SALINE)
     Route: 042
     Dates: start: 20220706, end: 20220706
  2. INJECTAFER [Suspect]
     Active Substance: FERRIC CARBOXYMALTOSE
     Indication: Crohn^s disease
     Dosage: 15 MG/KG, 680 MG (263.6 ML IN 250 ML OF NORMAL SALINE)
     Route: 042
     Dates: start: 20220719, end: 20220719
  3. AMINO ACIDS\CARBOHYDRATES\MINERALS\VITAMINS [Concomitant]
     Active Substance: AMINO ACIDS\CARBOHYDRATES\MINERALS\VITAMINS
     Indication: Parenteral nutrition
     Dosage: UNK
     Route: 065
  4. ALBUTEROL [Concomitant]
     Active Substance: ALBUTEROL
     Indication: Product used for unknown indication
     Dosage: UNK
     Route: 065
  5. DIPHENHYDRAMINE [Concomitant]
     Active Substance: DIPHENHYDRAMINE
     Indication: Insomnia
     Dosage: 25 MILLIGRAM TABLET PRN INSOMNIA
     Route: 065
  6. DIPHENHYDRAMINE [Concomitant]
     Active Substance: DIPHENHYDRAMINE
     Indication: Premedication
     Dosage: 50 MILLIGRAM, THEN SECOND DOSE OF 50 MG X 1
     Route: 065
     Dates: start: 20220706, end: 20220706
  7. DIPHENHYDRAMINE [Concomitant]
     Active Substance: DIPHENHYDRAMINE
     Dosage: 50 MILLIGRAM, THEN SECOND DOSE OF 50 MG X 1
     Route: 065
     Dates: start: 20220719, end: 20220719
  8. DIPHENHYDRAMINE [Concomitant]
     Active Substance: DIPHENHYDRAMINE
     Dosage: AN ADDITIONAL 25 MILLIGRAM
     Route: 065
     Dates: start: 20220719, end: 20220719
  9. MIRTAZAPINE [Concomitant]
     Active Substance: MIRTAZAPINE
     Indication: Depression
     Dosage: 45 MILLIGRAM NIGHTLY
     Route: 065
  10. ONDANSETRON [Concomitant]
     Active Substance: ONDANSETRON
     Indication: Nausea
     Dosage: 4 MILLIGRAM, PRN
     Route: 065
  11. ONDANSETRON [Concomitant]
     Active Substance: ONDANSETRON
     Indication: Vomiting
  12. TESTOSTERONE [Concomitant]
     Active Substance: TESTOSTERONE
     Indication: Product used for unknown indication
     Dosage: 4 MILLIGRAM DAILY
     Route: 062
  13. STELARA [Concomitant]
     Active Substance: USTEKINUMAB
     Indication: Product used for unknown indication
     Dosage: 90 MILLIGRAM EVERY 8 WEEKS
     Route: 065
  14. FAMOTIDINE [Concomitant]
     Active Substance: FAMOTIDINE
     Indication: Premedication
     Dosage: 20 MILLIGRAM X 1
     Route: 042
     Dates: start: 20220706, end: 20220706
  15. FAMOTIDINE [Concomitant]
     Active Substance: FAMOTIDINE
     Dosage: 20 MILLIGRAM X 1
     Route: 042
     Dates: start: 20220719, end: 20220719
  16. METHYLPREDNISOLONE [Concomitant]
     Active Substance: METHYLPREDNISOLONE
     Indication: Premedication
     Dosage: 125 MILLIGRAM
     Dates: start: 20220706, end: 20220706
  17. METHYLPREDNISOLONE [Concomitant]
     Active Substance: METHYLPREDNISOLONE
     Dosage: 125 MILLIGRAM
     Dates: start: 20220719, end: 20220719

REACTIONS (4)
  - Throat tightness [Recovered/Resolved]
  - Hypophosphataemia [Not Recovered/Not Resolved]
  - Chest discomfort [Recovered/Resolved]
  - Hypokalaemia [Recovered/Resolved]

NARRATIVE: CASE EVENT DATE: 20220706
